FAERS Safety Report 9848609 (Version 1)
Quarter: 2013Q4

REPORT INFORMATION
  Report Type: Spontaneous
  Country: US (occurrence: None)
  Receive Date: 20131226
  Receipt Date: 20131226
  Transmission Date: 20140711
  Serious: Yes (Other)
  Sender: FDA-Public Use
  Company Number: PHEH2013US004273

PATIENT
  Age: 67 Year
  Sex: Female

DRUGS (4)
  1. DICLOFENAC (DICLOFENAC) [Suspect]
  2. METHOTREXATE (METHOTREXATE) [Suspect]
  3. PLAQUENIL (HYDROXYCHLOROQUINE SULFATE) / ORAL / TABLET, FILM COATED / 200 MILLIGRAM(S) [Suspect]
  4. HYDROCODONE BITARTATE AND ACETAMINOPHEN [Suspect]

REACTIONS (3)
  - Gastric ulcer [None]
  - Abdominal discomfort [None]
  - Visual impairment [None]
